FAERS Safety Report 17483778 (Version 1)
Quarter: 2020Q1

REPORT INFORMATION
  Report Type: Spontaneous
  Country: FR (occurrence: FR)
  Receive Date: 20200302
  Receipt Date: 20200302
  Transmission Date: 20200409
  Serious: Yes (Other)
  Sender: FDA-Public Use
  Company Number: FR-US-PROVELL PHARMACEUTICALS LLC-E2B_90074919

PATIENT
  Sex: Female

DRUGS (3)
  1. NEOMERCAZOLE [Suspect]
     Active Substance: CARBIMAZOLE
     Indication: THYROID DISORDER
  2. LEVOTHYROX [Suspect]
     Active Substance: LEVOTHYROXINE
     Indication: THYROID DISORDER
     Dosage: FORM STRENGTH: 88 (UNSPECIFIED UNIT)
     Dates: start: 20200118
  3. THYROZOL 20 MG [Suspect]
     Active Substance: METHIMAZOLE
     Indication: THYROID DISORDER

REACTIONS (2)
  - Maternal exposure during pregnancy [Recovered/Resolved]
  - Abortion spontaneous [Recovered/Resolved]

NARRATIVE: CASE EVENT DATE: 2020
